FAERS Safety Report 10462297 (Version 1)
Quarter: 2014Q3

REPORT INFORMATION
  Report Type: Report from Study
  Country: CA (occurrence: CA)
  Receive Date: 20140918
  Receipt Date: 20140918
  Transmission Date: 20150326
  Serious: Yes (Other)
  Sender: FDA-Public Use
  Company Number: CA-BRISTOL-MYERS SQUIBB COMPANY-21394283

PATIENT
  Sex: Female

DRUGS (5)
  1. VOLTAREN [Concomitant]
     Active Substance: DICLOFENAC SODIUM
  2. ABATACEPT [Suspect]
     Active Substance: ABATACEPT
     Indication: RHEUMATOID ARTHRITIS
     Dosage: ONG
     Route: 058
     Dates: start: 201311
  3. TYLENOL [Concomitant]
     Active Substance: ACETAMINOPHEN
  4. EXTERNAL-PREDNISONE [Concomitant]
  5. VITAMIN [Concomitant]
     Active Substance: VITAMINS

REACTIONS (1)
  - Arthropathy [Unknown]
